FAERS Safety Report 5695031-8 (Version None)
Quarter: 2008Q2

REPORT INFORMATION
  Report Type: 
  Country: None (occurrence: None)
  Receive Date: 20080404
  Receipt Date: 20080325
  Transmission Date: 20081010
  Serious: Yes (Other)
  Sender: FDA-Public Use
  Company Number: BR-PFIZER INC-2008026744

PATIENT
  Age: 26 Year
  Sex: Female

DRUGS (6)
  1. DOXORUBICIN HCL [Suspect]
     Indication: HODGKIN'S DISEASE
  2. ETOPOSIDE [Suspect]
  3. VINCRISTINE [Suspect]
  4. CYCLOPHOSPHAMIDE [Suspect]
  5. PREDNISONE [Suspect]
  6. BLEOMYCIN SULFATE [Suspect]

REACTIONS (3)
  - AMENORRHOEA [None]
  - OVARIAN FAILURE [None]
  - PULMONARY EMBOLISM [None]
